FAERS Safety Report 4508845-4 (Version None)
Quarter: 2004Q4

REPORT INFORMATION
  Report Type: 
  Country: None (occurrence: None)
  Receive Date: 20041118
  Receipt Date: 20041102
  Transmission Date: 20050328
  Serious: Yes (Hospitalization)
  Sender: FDA-Public Use
  Company Number: DSA_25315_2004

PATIENT
  Age: 41 Year
  Sex: Female
  Weight: 48 kg

DRUGS (11)
  1. TEMESTA [Suspect]
     Dosage: PO
     Route: 048
     Dates: end: 20040902
  2. TEMESTA [Suspect]
     Dosage: PO
     Route: 048
     Dates: start: 20040914, end: 20040921
  3. FRAGMIN [Suspect]
     Dosage: 2500 MG Q DAY SC
     Route: 058
     Dates: start: 20040909, end: 20040921
  4. PETHADINE [Concomitant]
  5. METHADONE [Concomitant]
  6. STILNOX [Concomitant]
  7. NEXIUM [Concomitant]
  8. FOLIC ACID [Concomitant]
  9. BENERVA [Concomitant]
  10. BECOZYM [Concomitant]
  11. KCL-RETARD [Concomitant]

REACTIONS (3)
  - DRUG SCREEN POSITIVE [None]
  - POLYSUBSTANCE ABUSE [None]
  - THROMBOCYTOPENIA [None]
